FAERS Safety Report 5413565-8 (Version None)
Quarter: 2007Q3

REPORT INFORMATION
  Report Type: 
  Country: None (occurrence: None)
  Receive Date: 20070814
  Receipt Date: 20070810
  Transmission Date: 20080115
  Serious: Yes (Other)
  Sender: FDA-Public Use
  Company Number: US-ASTRAZENECA-2007UW19415

PATIENT
  Age: 43 Year
  Sex: Female
  Weight: 95.3 kg

DRUGS (3)
  1. NEXIUM [Suspect]
     Indication: GASTROOESOPHAGEAL REFLUX DISEASE
     Route: 048
  2. NEXIUM [Suspect]
     Route: 048
  3. TYLENOL [Concomitant]

REACTIONS (3)
  - BLOOD CHOLESTEROL DECREASED [None]
  - BLOOD PRESSURE DECREASED [None]
  - MYOCARDIAL INFARCTION [None]
